FAERS Safety Report 10782711 (Version 1)
Quarter: 2015Q1

REPORT INFORMATION
  Report Type: Spontaneous
  Country: US (occurrence: US)
  Receive Date: 20150210
  Receipt Date: 20150210
  Transmission Date: 20150721
  Serious: No
  Sender: FDA-Public Use
  Company Number: US-GLAXOSMITHKLINE-A1077442A

PATIENT

DRUGS (1)
  1. LAMICTAL [Suspect]
     Active Substance: LAMOTRIGINE
     Indication: NERVOUS SYSTEM DISORDER
     Dosage: 25 MG, 50MG, 100 MG (ODT STARTER KIT), UNKNOWN DOSING.
     Route: 065
     Dates: start: 20140219

REACTIONS (1)
  - Drug dose omission [Unknown]
